FAERS Safety Report 14783605 (Version 1)
Quarter: 2018Q2

REPORT INFORMATION
  Report Type: Spontaneous
  Country: US (occurrence: US)
  Receive Date: 20180420
  Receipt Date: 20180420
  Transmission Date: 20180711
  Serious: Yes (Other)
  Sender: FDA-Public Use
  Company Number: US-ROCHE-2103925

PATIENT
  Sex: Female
  Weight: 71.28 kg

DRUGS (13)
  1. METHOTREXATE. [Suspect]
     Active Substance: METHOTREXATE
     Indication: RHEUMATOID ARTHRITIS
     Route: 065
     Dates: start: 201201, end: 201307
  2. ORENCIA [Suspect]
     Active Substance: ABATACEPT
     Indication: RHEUMATOID ARTHRITIS
     Route: 065
  3. HUMIRA [Suspect]
     Active Substance: ADALIMUMAB
     Indication: RHEUMATOID ARTHRITIS
     Route: 065
  4. XELJANZ [Suspect]
     Active Substance: TOFACITINIB CITRATE
     Indication: RHEUMATOID ARTHRITIS
     Dosage: ONGOING: YES
     Route: 048
     Dates: start: 201710
  5. COZAAR [Concomitant]
     Active Substance: LOSARTAN POTASSIUM
  6. ENBREL [Suspect]
     Active Substance: ETANERCEPT
     Indication: RHEUMATOID ARTHRITIS
     Route: 058
  7. RITUXAN [Suspect]
     Active Substance: RITUXIMAB
     Indication: RHEUMATOID ARTHRITIS
     Dosage: ONGOING: UNKNOWN
     Route: 065
     Dates: start: 201511
  8. REMICADE [Suspect]
     Active Substance: INFLIXIMAB
     Indication: RHEUMATOID ARTHRITIS
     Route: 065
  9. GLUCOPHAGE [Concomitant]
     Active Substance: METFORMIN HYDROCHLORIDE
  10. ECOTRIN [Concomitant]
     Active Substance: ASPIRIN
     Dosage: ONGOING: YES
     Route: 065
  11. XYZAL [Concomitant]
     Active Substance: LEVOCETIRIZINE DIHYDROCHLORIDE
  12. ACTEMRA [Suspect]
     Active Substance: TOCILIZUMAB
     Indication: RHEUMATOID ARTHRITIS
     Route: 065
  13. ALLEGRA [Concomitant]
     Active Substance: FEXOFENADINE HYDROCHLORIDE

REACTIONS (25)
  - Hiatus hernia [Unknown]
  - Cough [Unknown]
  - Nasopharyngitis [Unknown]
  - Drug hypersensitivity [Unknown]
  - Ear infection [Unknown]
  - Transient ischaemic attack [Unknown]
  - Intervertebral disc displacement [Unknown]
  - Intervertebral disc space narrowing [Unknown]
  - Osteoporosis [Unknown]
  - Blister [Unknown]
  - Rash [Unknown]
  - Urinary retention [Unknown]
  - Thyroid disorder [Unknown]
  - Sluggishness [Unknown]
  - Sinusitis [Unknown]
  - Hypersensitivity [Unknown]
  - Blood cholesterol increased [Unknown]
  - Hypoaesthesia [Unknown]
  - Loss of personal independence in daily activities [Recovering/Resolving]
  - Diabetes mellitus [Unknown]
  - Hypertension [Unknown]
  - Headache [Unknown]
  - Abdominal discomfort [Unknown]
  - Bronchitis [Unknown]
  - Malaise [Unknown]
